FAERS Safety Report 21161231 (Version 1)
Quarter: 2022Q3

REPORT INFORMATION
  Report Type: Spontaneous
  Country: AR (occurrence: AR)
  Receive Date: 20220802
  Receipt Date: 20220802
  Transmission Date: 20221027
  Serious: No
  Sender: FDA-Public Use
  Company Number: AR-KARYOPHARM-2022KPT000850

PATIENT
  Age: 59 Year
  Sex: Female

DRUGS (4)
  1. SELINEXOR [Suspect]
     Active Substance: SELINEXOR
     Indication: Plasma cell myeloma
     Dosage: 100 MG, WEEKLY
     Route: 048
     Dates: start: 20191001, end: 202011
  2. SELINEXOR [Suspect]
     Active Substance: SELINEXOR
     Dosage: 80 MG, WEEKLY
     Route: 048
     Dates: start: 202011, end: 20220210
  3. BORTEZOMIB [Concomitant]
     Active Substance: BORTEZOMIB
     Indication: Plasma cell myeloma
     Dosage: 1.3 MG/M2, ON DAYS 1, 8, 15, 22
     Dates: start: 20191001, end: 20200210
  4. DEXAMETHASONE [Concomitant]
     Active Substance: DEXAMETHASONE
     Indication: Plasma cell myeloma
     Dosage: 20 MG DAYS 1, 2, 8, 9, 15, 16, 22, 23, 29, 30
     Dates: start: 20191001, end: 20200210

REACTIONS (3)
  - Nausea [Unknown]
  - Thrombocytopenia [Unknown]
  - Asthenia [Unknown]
